FAERS Safety Report 22312579 (Version 1)
Quarter: 2023Q2

REPORT INFORMATION
  Report Type: Spontaneous
  Country: BR (occurrence: BR)
  Receive Date: 20230512
  Receipt Date: 20230512
  Transmission Date: 20230722
  Serious: Yes (Other)
  Sender: FDA-Public Use
  Company Number: BR-UCBSA-2023021534

PATIENT
  Age: 70 Year
  Sex: Male

DRUGS (16)
  1. NEUPRO [Suspect]
     Active Substance: ROTIGOTINE
     Indication: Parkinson^s disease
     Dosage: 4 MILLIGRAM, ONCE DAILY (QD)
     Route: 062
     Dates: start: 20190401
  2. XARELTO [Concomitant]
     Active Substance: RIVAROXABAN
     Indication: Thrombosis
     Dosage: 15 MILLIGRAM 1 PILL AFTER LUNCH
     Route: 048
     Dates: start: 202303
  3. SIMVASTATIN [Concomitant]
     Active Substance: SIMVASTATIN
     Indication: Hyperlipidaemia
     Dosage: 20 MILLIGRAM, 1 PILL AFTER THE DINNER. FOR THE ^FAT IN THE VEINS
     Route: 048
     Dates: start: 202203
  4. FUROSEMIDE [Concomitant]
     Active Substance: FUROSEMIDE
     Indication: Diuretic therapy
     Dosage: UNK, ONCE DAILY (QD)
     Route: 048
     Dates: start: 202203
  5. BISOPROLOL FUMARATE [Concomitant]
     Active Substance: BISOPROLOL FUMARATE
     Indication: Atrial fibrillation
     Dosage: 5 MILLIGRAM, ONCE DAILY (QD)
     Route: 048
     Dates: start: 202203
  6. PROLIA [Concomitant]
     Active Substance: DENOSUMAB
     Indication: Osteoporosis
     Dosage: 60 MILLIGRAM, EV 6 MONTHS
     Dates: start: 2021
  7. PROLIA [Concomitant]
     Active Substance: DENOSUMAB
     Indication: Spinal fracture
  8. VITAMIN D NOS [Concomitant]
     Active Substance: VITAMIN D NOS
     Indication: Osteoporosis
     Dosage: 20.000 INTERNATIONAL UNIT, 2X/WEEK
     Route: 048
     Dates: start: 2021
  9. VITAMIN D NOS [Concomitant]
     Active Substance: VITAMIN D NOS
     Indication: Spinal fracture
  10. COLAGENO [COLLAGEN] [Concomitant]
     Indication: Fibrosis
     Dosage: 1 SACHET, ONCE DAILY (QD)
     Route: 048
  11. MIRTAZAPINE [Concomitant]
     Active Substance: MIRTAZAPINE
     Indication: Insomnia
     Dosage: 30 MILLIGRAM 1 PILL TO SLEEP
     Route: 048
     Dates: start: 2019
  12. GABAPENTIN [Concomitant]
     Active Substance: GABAPENTIN
     Indication: Neuralgia
     Dosage: 300 MILLIGRAM, ONCE DAILY (QD)
     Route: 048
     Dates: start: 202212
  13. OMEPRAZOLE [Concomitant]
     Active Substance: OMEPRAZOLE
     Indication: Product used for unknown indication
     Dosage: 20 MILLIGRAM, 1 PILL FASTING AT 6 AM.
     Route: 048
  14. DIGEDRAT [Concomitant]
     Indication: Product used for unknown indication
     Dosage: 200 MILLIGRAM, 1 PILL BEFORE LUNCH
  15. CILOSTAZOL [Concomitant]
     Active Substance: CILOSTAZOL
     Indication: Thrombosis
     Dosage: 100 MILLIGRAM, 2X/DAY (BID)
     Route: 048
     Dates: start: 202203
  16. INELATTE [Concomitant]
     Indication: Osteoporosis
     Dosage: 800 DKM, ONCE DAILY (QD)
     Route: 048
     Dates: start: 2021

REACTIONS (12)
  - Muscle rigidity [Not Recovered/Not Resolved]
  - Tremor [Not Recovered/Not Resolved]
  - Insomnia [Not Recovered/Not Resolved]
  - Thrombosis [Unknown]
  - Atrial fibrillation [Unknown]
  - Spinal fracture [Unknown]
  - Osteoporosis [Unknown]
  - Spinal disorder [Unknown]
  - Fibrosis [Unknown]
  - Product availability issue [Unknown]
  - Intentional dose omission [Unknown]
  - Therapy interrupted [Unknown]

NARRATIVE: CASE EVENT DATE: 20190401
